FAERS Safety Report 13094991 (Version 1)
Quarter: 2017Q1

REPORT INFORMATION
  Report Type: Spontaneous
  Country: US (occurrence: US)
  Receive Date: 20170106
  Receipt Date: 20170106
  Transmission Date: 20170428
  Serious: Yes (Other)
  Sender: FDA-Public Use
  Company Number: US-SPECTRUM PHARMACEUTICALS, INC.-16-M-US-00409

PATIENT
  Age: 26 Year
  Sex: Male

DRUGS (1)
  1. VINCRISTINE SULFATE LIPOSOME [Suspect]
     Active Substance: VINCRISTINE SULFATE
     Indication: LYMPHOCYTIC LEUKAEMIA
     Dosage: 4 MG, QW
     Route: 042
     Dates: start: 20160622, end: 20161114

REACTIONS (4)
  - Disease progression [Not Recovered/Not Resolved]
  - B-cell prolymphocytic leukaemia [None]
  - Neuropathy peripheral [Not Recovered/Not Resolved]
  - Condition aggravated [None]

NARRATIVE: CASE EVENT DATE: 20161024
